FAERS Safety Report 25059690 (Version 1)
Quarter: 2025Q1

REPORT INFORMATION
  Report Type: Spontaneous
  Country: CH (occurrence: CH)
  Receive Date: 20250310
  Receipt Date: 20250310
  Transmission Date: 20250409
  Serious: Yes (Death, Hospitalization, Other)
  Sender: DAIICHI
  Company Number: CH-DSJP-DS-2025-129149-CH

PATIENT
  Sex: Female

DRUGS (1)
  1. ENHERTU [Suspect]
     Active Substance: FAM-TRASTUZUMAB DERUXTECAN-NXKI
     Indication: Breast cancer
     Route: 065
     Dates: start: 20240802

REACTIONS (4)
  - Death [Fatal]
  - Metastases to bone [Unknown]
  - Metastases to bone [Unknown]
  - Pathological fracture [Unknown]

NARRATIVE: CASE EVENT DATE: 20250220
